FAERS Safety Report 20439383 (Version 1)
Quarter: 2022Q1

REPORT INFORMATION
  Report Type: Spontaneous
  Country: GB (occurrence: None)
  Receive Date: 20220204
  Receipt Date: 20220204
  Transmission Date: 20220424
  Serious: Yes (Other)
  Sender: FDA-Public Use
  Company Number: None

PATIENT
  Age: 29 Year
  Sex: Female
  Weight: 56 kg

DRUGS (1)
  1. COPPER [Suspect]
     Active Substance: COPPER

REACTIONS (10)
  - Weight increased [None]
  - Depressed mood [None]
  - Emotional disorder [None]
  - Suicidal ideation [None]
  - Feeling abnormal [None]
  - Fatigue [None]
  - Abdominal distension [None]
  - Device dislocation [None]
  - Abdominal pain [None]
  - Product complaint [None]

NARRATIVE: CASE EVENT DATE: 20220202
